FAERS Safety Report 4858851-5 (Version None)
Quarter: 2005Q4

REPORT INFORMATION
  Report Type: 
  Country: None (occurrence: None)
  Receive Date: 20051219
  Receipt Date: 20050819
  Transmission Date: 20060501
  Serious: No
  Sender: FDA-Public Use
  Company Number: US-GLAXOSMITHKLINE-A0570994A

PATIENT
  Age: 50 Year
  Sex: Female

DRUGS (4)
  1. NICODERM CQ [Suspect]
     Dates: start: 20050817, end: 20050817
  2. THYROID TAB [Concomitant]
  3. ATIVAN [Concomitant]
  4. PREVACID [Concomitant]

REACTIONS (3)
  - COUGH [None]
  - DIARRHOEA [None]
  - TREMOR [None]
